FAERS Safety Report 8106592 (Version 3)
Quarter: 2014Q2

REPORT INFORMATION
  Report Type: Spontaneous
  Country: US (occurrence: US)
  Receive Date: 20110825
  Receipt Date: 20140623
  Transmission Date: 20141212
  Serious: Yes (Hospitalization)
  Sender: FDA-Public Use
  Company Number: US-GLAXOSMITHKLINE-A0888755A

PATIENT
  Sex: Female
  Weight: 67.3 kg

DRUGS (7)
  1. AVANDIA [Suspect]
     Indication: DIABETES MELLITUS
     Dosage: 4MG PER DAY
     Route: 048
     Dates: start: 200210, end: 200406
  2. COMBIVENT [Concomitant]
  3. LOTENSIN [Concomitant]
  4. ZYRTEC [Concomitant]
  5. GLUCOTROL XL [Concomitant]
  6. GLUCOPHAGE [Concomitant]
  7. ADVAIR [Concomitant]

REACTIONS (2)
  - Myocardial infarction [Unknown]
  - Coronary artery disease [Unknown]
